FAERS Safety Report 24788005 (Version 1)
Quarter: 2024Q4

REPORT INFORMATION
  Report Type: Spontaneous
  Country: US (occurrence: US)
  Receive Date: 20241230
  Receipt Date: 20241230
  Transmission Date: 20250115
  Serious: No
  Sender: DR REDDYS
  Company Number: US-DRL-USA-SPO/USA/24/0018827

PATIENT
  Sex: Male

DRUGS (2)
  1. FEXOFENADINE HYDROCHLORIDE [Suspect]
     Active Substance: FEXOFENADINE HYDROCHLORIDE
     Indication: Product used for unknown indication
     Dosage: FEXOFENADINE HCL TABLETS 180 MG OTC, 90 COUNT (HEALTHCAREAISLE)
     Route: 065
  2. FEXOFENADINE HYDROCHLORIDE [Suspect]
     Active Substance: FEXOFENADINE HYDROCHLORIDE
     Dosage: FEXOFENADINE HCL TABLETS 180 MG OTC, 90 COUNT (HEALTHCAREAISLE)
     Route: 065

REACTIONS (2)
  - Drug effect less than expected [Unknown]
  - Intentional product use issue [Unknown]
